FAERS Safety Report 19274287 (Version 1)
Quarter: 2021Q2

REPORT INFORMATION
  Report Type: Spontaneous
  Country: US (occurrence: US)
  Receive Date: 20210519
  Receipt Date: 20210519
  Transmission Date: 20210717
  Serious: No
  Sender: FDA-Public Use
  Company Number: None

PATIENT
  Age: 36 Year
  Sex: Female
  Weight: 95.85 kg

DRUGS (2)
  1. GABAPENTIN. [Suspect]
     Active Substance: GABAPENTIN
     Indication: BACK PAIN
     Dosage: ?          QUANTITY:2 CAPSULE(S);?
     Route: 048
     Dates: start: 20210518, end: 20210519
  2. ZOLOFT [Concomitant]
     Active Substance: SERTRALINE HYDROCHLORIDE

REACTIONS (3)
  - Hyperventilation [None]
  - Chest discomfort [None]
  - Paraesthesia [None]

NARRATIVE: CASE EVENT DATE: 20210519
